FAERS Safety Report 4353349-5 (Version None)
Quarter: 2004Q2

REPORT INFORMATION
  Report Type: 
  Country: None (occurrence: None)
  Receive Date: 20040430
  Receipt Date: 20040423
  Transmission Date: 20050107
  Serious: Yes (Hospitalization, Other)
  Sender: FDA-Public Use
  Company Number: 2004210423US

PATIENT
  Sex: Female

DRUGS (2)
  1. XANAX [Suspect]
     Dosage: 1 MG
  2. LEXAPRO [Concomitant]

REACTIONS (6)
  - CONDITION AGGRAVATED [None]
  - DEVICE INEFFECTIVE [None]
  - DRUG WITHDRAWAL CONVULSIONS [None]
  - LOSS OF CONSCIOUSNESS [None]
  - SUICIDAL IDEATION [None]
  - TINNITUS [None]
